FAERS Safety Report 10169254 (Version 1)
Quarter: 2014Q2

REPORT INFORMATION
  Report Type: Spontaneous
  Country: CA (occurrence: None)
  Receive Date: 20140509
  Receipt Date: 20140509
  Transmission Date: 20141212
  Serious: Yes (Life-Threatening, Hospitalization, Other)
  Sender: FDA-Public Use
  Company Number: 2014-CA-005815

PATIENT
  Age: 39 Year
  Sex: Female

DRUGS (2)
  1. XYREM (SODIUM OXYBATE) ORAL SOLUTION, 500MG/ML [Suspect]
     Indication: CATAPLEXY
     Route: 048
     Dates: start: 20140219, end: 20140310
  2. LYRICA (PREGABALIN) [Concomitant]

REACTIONS (4)
  - Psychotic disorder [None]
  - Psychopathic personality [None]
  - Aggression [None]
  - Thinking abnormal [None]
